FAERS Safety Report 9881472 (Version 2)
Quarter: 2014Q1

REPORT INFORMATION
  Report Type: Report from Study
  Country: JP (occurrence: JP)
  Receive Date: 20140207
  Receipt Date: 20140220
  Transmission Date: 20141002
  Serious: Yes (Death, Other)
  Sender: FDA-Public Use
  Company Number: JP-BAYER-2014-017828

PATIENT
  Sex: Female

DRUGS (1)
  1. LOW DOSE ASPIRIN [Suspect]
     Indication: ESSENTIAL THROMBOCYTHAEMIA

REACTIONS (4)
  - Maternal exposure during pregnancy [None]
  - Pulmonary embolism [Fatal]
  - Superior sagittal sinus thrombosis [None]
  - Off label use [None]
